FAERS Safety Report 11510981 (Version 2)
Quarter: 2015Q4

REPORT INFORMATION
  Report Type: Spontaneous
  Country: GB (occurrence: GB)
  Receive Date: 20150915
  Receipt Date: 20151103
  Transmission Date: 20160304
  Serious: Yes (Other)
  Sender: FDA-Public Use
  Company Number: GB-ALLERGAN-1510964US

PATIENT
  Age: 26 Year
  Sex: Female
  Weight: 90 kg

DRUGS (2)
  1. BOTOX [Suspect]
     Active Substance: ONABOTULINUMTOXINA
     Indication: MIGRAINE
     Dosage: 155 UNITS, SINGLE
     Route: 030
     Dates: start: 20150427, end: 20150427
  2. BOTOX [Suspect]
     Active Substance: ONABOTULINUMTOXINA
     Dosage: 155 UNITS, UNK
     Route: 030
     Dates: start: 20150123, end: 20150123

REACTIONS (2)
  - Abortion spontaneous [Unknown]
  - Pregnancy [Unknown]

NARRATIVE: CASE EVENT DATE: 20150904
